FAERS Safety Report 4322060-9 (Version None)
Quarter: 2004Q1

REPORT INFORMATION
  Report Type: 
  Country: None (occurrence: None)
  Receive Date: 20040319
  Receipt Date: 20040309
  Transmission Date: 20041129
  Serious: Yes (Other)
  Sender: FDA-Public Use
  Company Number: US-JNJFOC-20040302317

PATIENT
  Age: 9 Year
  Sex: Female
  Weight: 27.2158 kg

DRUGS (5)
  1. CONCERTA [Suspect]
     Indication: ATTENTION DEFICIT/HYPERACTIVITY DISORDER
     Dosage: 18 MG, 1 IN 1 DAY, ORAL;  27 MG, 1 IN 1 DAY, ORAL;
     Route: 048
     Dates: start: 20030901
  2. CONCERTA [Suspect]
     Indication: ATTENTION DEFICIT/HYPERACTIVITY DISORDER
     Dosage: 18 MG, 1 IN 1 DAY, ORAL;  27 MG, 1 IN 1 DAY, ORAL;
     Route: 048
     Dates: start: 20040303
  3. PREVACID [Concomitant]
  4. ALBUTEROL [Concomitant]
  5. ATROVENT [Concomitant]

REACTIONS (8)
  - DRUG INEFFECTIVE [None]
  - ERYTHEMA [None]
  - HEART RATE INCREASED [None]
  - INITIAL INSOMNIA [None]
  - MEDICATION ERROR [None]
  - PSYCHOMOTOR HYPERACTIVITY [None]
  - RASH [None]
  - URINARY INCONTINENCE [None]
